FAERS Safety Report 10236534 (Version 2)
Quarter: 2014Q2

REPORT INFORMATION
  Report Type: Report from Study
  Country: US (occurrence: US)
  Receive Date: 20140613
  Receipt Date: 20140613
  Transmission Date: 20141212
  Serious: Yes (Hospitalization)
  Sender: FDA-Public Use
  Company Number: PHEH2014US009445

PATIENT
  Age: 60 Year
  Sex: Female
  Weight: 56.87 kg

DRUGS (13)
  1. GILENYA [Suspect]
     Indication: MULTIPLE SCLEROSIS
     Dosage: 0.5 MG, QD
     Route: 048
     Dates: start: 20140506, end: 20140506
  2. CYMBALTA [Concomitant]
     Dosage: 60 MG, DAILY
     Route: 048
  3. PREMPRO [Concomitant]
     Dosage: 0.3 MG-1.5 MG, ONE TABLET DAILY
  4. ONDANSETRON [Concomitant]
     Indication: NAUSEA
     Dosage: 4 MG, Q6H, AS NEEDED
     Route: 048
  5. VALIUM [Concomitant]
     Dosage: 5 MG, Q6H, AS NEEDED
  6. ACETAMINOPHEN W/CODEINE [Concomitant]
     Indication: PAIN
     Dosage: 1 DF, Q8H, PRN
     Route: 048
  7. MULTI VITAMIN + MINERAL [Concomitant]
     Dosage: 2 ML, EVERY AM
  8. SYNTHROID [Concomitant]
     Dosage: 75 UG, QD, IN AM ON EMPTY STOMACH
     Route: 048
  9. GABAPENTIN [Concomitant]
     Indication: PAIN IN EXTREMITY
     Dosage: 600 MG, QHS, HALF TO ONE TAB
     Route: 048
  10. GABAPENTIN [Concomitant]
     Indication: SLEEP DISORDER
  11. BACLOFEN [Concomitant]
     Dosage: 10 MG, TID
  12. CIPRO [Concomitant]
     Dosage: 250 MG, BID, FOR 3 DAYS
     Route: 048
  13. SIMVASTATIN [Concomitant]
     Dosage: 10 MG, QD
     Route: 048

REACTIONS (3)
  - Chest pain [Recovering/Resolving]
  - Bradycardia [Recovering/Resolving]
  - Dizziness [Recovering/Resolving]
